FAERS Safety Report 23768843 (Version 1)
Quarter: 2024Q2

REPORT INFORMATION
  Report Type: Spontaneous
  Country: US (occurrence: None)
  Receive Date: 20240419
  Receipt Date: 20240419
  Transmission Date: 20240716
  Serious: Yes (Other)
  Sender: FDA-Public Use
  Company Number: None

PATIENT
  Age: 87 Year
  Sex: Female
  Weight: 77.8 kg

DRUGS (13)
  1. FASLODEX [Suspect]
     Active Substance: FULVESTRANT
     Indication: Breast cancer metastatic
     Dosage: 350 MG MONTHLY INTRAMUSCULAR?
     Route: 030
  2. ASPIRIN [Concomitant]
     Active Substance: ASPIRIN
  3. ATORVASTATIN [Concomitant]
  4. CELECOXIB [Concomitant]
  5. CETIRIZINE [Concomitant]
  6. CYCLOBENZAPRINE [Concomitant]
  7. DICYCLOMINE [Concomitant]
     Active Substance: DICYCLOMINE HYDROCHLORIDE
  8. LISINOPRIL [Concomitant]
  9. metoprolol XL [Concomitant]
  10. OLMESARTAN [Concomitant]
  11. OMEPRAZOLE [Concomitant]
  12. DULOXETINE [Concomitant]
  13. PALBOCICLIB [Concomitant]
     Active Substance: PALBOCICLIB

REACTIONS (4)
  - Dyspnoea [None]
  - Dizziness [None]
  - Abdominal pain upper [None]
  - Hypertension [None]

NARRATIVE: CASE EVENT DATE: 20240403
